FAERS Safety Report 6398296-2 (Version None)
Quarter: 2009Q4

REPORT INFORMATION
  Report Type: 
  Country: None (occurrence: None)
  Receive Date: 20091007
  Receipt Date: 20090930
  Transmission Date: 20100525
  Serious: Yes (Death, Hospitalization)
  Sender: FDA-Public Use
  Company Number: 220004M08CAN

PATIENT
  Age: 11 Year
  Sex: Female
  Weight: 33.2 kg

DRUGS (4)
  1. SAIZEN [Suspect]
     Indication: GROWTH HORMONE DEFICIENCY
     Dosage: 1 MG, 6 IN 1 WEEKS, SUBCUTANEOUS
     Route: 058
     Dates: start: 20070904, end: 20080416
  2. LEVOTHYROXINE SODIUM [Concomitant]
  3. CALCIUM CARBONATE [Concomitant]
  4. ERGOCALCIFEROL [Concomitant]

REACTIONS (7)
  - ABDOMINAL PAIN [None]
  - MALIGNANT NEOPLASM PROGRESSION [None]
  - MEDULLOBLASTOMA RECURRENT [None]
  - METASTASES TO SPINE [None]
  - OSTEOPENIA [None]
  - SPINAL CORD COMPRESSION [None]
  - URINARY RETENTION [None]
